FAERS Safety Report 5249119-6 (Version None)
Quarter: 2007Q1

REPORT INFORMATION
  Report Type: 
  Country: None (occurrence: None)
  Receive Date: 20070228
  Receipt Date: 20070222
  Transmission Date: 20070707
  Serious: Yes (Other)
  Sender: FDA-Public Use
  Company Number: US-BRISTOL-MYERS SQUIBB COMPANY-13688205

PATIENT

DRUGS (7)
  1. ACETAMINOPHEN [Suspect]
  2. PHENYTOIN [Suspect]
  3. NEFAZODONE HCL [Suspect]
  4. IBUPROFEN [Suspect]
  5. HYDROCODONE [Suspect]
  6. NITROFURANTOIN [Suspect]
  7. NAPROXEN [Suspect]

REACTIONS (1)
  - ACUTE HEPATIC FAILURE [None]
